FAERS Safety Report 13292216 (Version 2)
Quarter: 2017Q1

REPORT INFORMATION
  Report Type: Report from Study
  Country: KR (occurrence: KR)
  Receive Date: 20170303
  Receipt Date: 20170329
  Transmission Date: 20170428
  Serious: Yes (Hospitalization)
  Sender: FDA-Public Use
  Company Number: KR-PFIZER INC-2017088112

PATIENT
  Age: 53 Year
  Sex: Female
  Weight: 51 kg

DRUGS (3)
  1. PACLITAXEL. [Suspect]
     Active Substance: PACLITAXEL
     Indication: OVARIAN CANCER
     Dosage: 270 MG, EVERY 3 WEEKS
     Route: 042
     Dates: start: 20170124
  2. CARBOPLATIN. [Suspect]
     Active Substance: CARBOPLATIN
     Indication: OVARIAN CANCER
     Dosage: 610 MG, EVERY 3 WEEKS
     Route: 042
     Dates: start: 20170124
  3. NO SUBJECT DRUG [Suspect]
     Active Substance: UNSPECIFIED INGREDIENT
     Dosage: NO DOSE GIVEN

REACTIONS (1)
  - Lymphocele [Recovered/Resolved with Sequelae]

NARRATIVE: CASE EVENT DATE: 20170224
